FAERS Safety Report 4662994-9 (Version None)
Quarter: 2005Q2

REPORT INFORMATION
  Report Type: 
  Country: None (occurrence: None)
  Receive Date: 20050511
  Receipt Date: 20040525
  Transmission Date: 20051028
  Serious: Yes (Disabling)
  Sender: FDA-Public Use
  Company Number: ZONI001436

PATIENT
  Sex: Female

DRUGS (2)
  1. ZONEGRAN [Suspect]
     Indication: PAIN
     Dates: start: 20040501, end: 20040523
  2. LIDOCAINE [Concomitant]

REACTIONS (1)
  - POLLAKIURIA [None]
